FAERS Safety Report 20653529 (Version 1)
Quarter: 2022Q1

REPORT INFORMATION
  Report Type: Spontaneous
  Country: US (occurrence: US)
  Receive Date: 20220330
  Receipt Date: 20220330
  Transmission Date: 20220423
  Serious: No
  Sender: FDA-Public Use
  Company Number: US-SA-SAC20220324001495

PATIENT
  Age: 61 Year
  Sex: Female

DRUGS (6)
  1. DUPIXENT [Suspect]
     Active Substance: DUPILUMAB
     Indication: Dermatitis atopic
     Dosage: 300 MG, QOW
     Route: 058
     Dates: start: 202109
  2. ADVIL [Concomitant]
     Active Substance: IBUPROFEN
  3. MUPIROCIN [Concomitant]
     Active Substance: MUPIROCIN
     Dosage: POWDER
  4. TACROLIMUS [Concomitant]
     Active Substance: TACROLIMUS
  5. EUCRISA [Concomitant]
     Active Substance: CRISABOROLE
  6. MODERNA COVID-19 VACCINE [Concomitant]
     Active Substance: ELASOMERAN
     Indication: Immunisation

REACTIONS (6)
  - Scar [Not Recovered/Not Resolved]
  - Dry skin [Not Recovered/Not Resolved]
  - Skin hypertrophy [Not Recovered/Not Resolved]
  - Erythema [Recovered/Resolved]
  - Injection site erythema [Unknown]
  - Eczema [Recovered/Resolved]

NARRATIVE: CASE EVENT DATE: 20220309
